FAERS Safety Report 21901552 (Version 1)
Quarter: 2023Q1

REPORT INFORMATION
  Report Type: Spontaneous
  Country: US (occurrence: US)
  Receive Date: 20230123
  Receipt Date: 20230123
  Transmission Date: 20230418
  Serious: Yes (Other)
  Sender: FDA-Public Use
  Company Number: US-BRISTOL-MYERS SQUIBB COMPANY-2023-010349

PATIENT
  Age: 63 Year
  Sex: Female
  Weight: 57.15 kg

DRUGS (1)
  1. REVLIMID [Suspect]
     Active Substance: LENALIDOMIDE
     Indication: Plasma cell myeloma
     Dosage: 25 MG DAILY X 21 DAYS ON AND 7 DAYS OFF
     Route: 048
     Dates: start: 20220907

REACTIONS (3)
  - Immunodeficiency [Recovering/Resolving]
  - Laboratory test abnormal [Recovering/Resolving]
  - Infusion site bruising [Recovering/Resolving]
